FAERS Safety Report 7138711-X (Version None)
Quarter: 2010Q4

REPORT INFORMATION
  Report Type: 
  Country: None (occurrence: None)
  Receive Date: 20101202
  Receipt Date: 20101202
  Transmission Date: 20110411
  Serious: No
  Sender: FDA-Public Use
  Company Number: None

PATIENT
  Age: 10 Year
  Sex: Female
  Weight: 40.8237 kg

DRUGS (1)
  1. CUBICIN [Suspect]
     Indication: OSTEOMYELITIS
     Dosage: 240MG DAILY IV DRIP
     Route: 041
     Dates: start: 20100823, end: 20100918

REACTIONS (1)
  - ANAEMIA [None]
